FAERS Safety Report 21034076 (Version 1)
Quarter: 2022Q3

REPORT INFORMATION
  Report Type: Spontaneous
  Country: JP (occurrence: JP)
  Receive Date: 20220701
  Receipt Date: 20220701
  Transmission Date: 20221026
  Serious: Yes (Hospitalization)
  Sender: FDA-Public Use
  Company Number: JP-SANOFI-2018SA012674

PATIENT
  Age: 8 Month
  Sex: Male
  Weight: 7.7 kg

DRUGS (28)
  1. SABRIL [Suspect]
     Active Substance: VIGABATRIN
     Indication: Infantile spasms
     Dosage: 375 MG, BID
     Route: 048
     Dates: start: 20180111, end: 20180205
  2. SABRIL [Suspect]
     Active Substance: VIGABATRIN
     Dosage: 250 MG, BID
     Route: 048
     Dates: start: 20171227, end: 20180110
  3. SABRIL [Suspect]
     Active Substance: VIGABATRIN
     Dosage: 500 MG, BID
     Route: 048
     Dates: start: 20180206, end: 20180405
  4. SABRIL [Suspect]
     Active Substance: VIGABATRIN
     Dosage: 625 MG, BID
     Route: 048
     Dates: start: 20180406, end: 20180506
  5. SABRIL [Suspect]
     Active Substance: VIGABATRIN
     Dosage: 500 MG, BID
     Route: 048
     Dates: start: 20180507, end: 20180522
  6. SABRIL [Suspect]
     Active Substance: VIGABATRIN
     Dosage: 375 MG, BID
     Route: 048
     Dates: start: 20180523, end: 20180618
  7. SABRIL [Suspect]
     Active Substance: VIGABATRIN
     Dosage: 250 MG, BID
     Route: 048
     Dates: start: 20180619, end: 20180717
  8. SABRIL [Suspect]
     Active Substance: VIGABATRIN
     Dosage: 325 MG, BID
     Route: 048
     Dates: start: 20200827, end: 20200927
  9. SABRIL [Suspect]
     Active Substance: VIGABATRIN
     Dosage: 500 MG, BID
     Route: 048
     Dates: start: 20200928, end: 20201025
  10. SABRIL [Suspect]
     Active Substance: VIGABATRIN
     Dosage: 650 MG, BID
     Route: 048
     Dates: start: 20201026, end: 20201202
  11. SABRIL [Suspect]
     Active Substance: VIGABATRIN
     Dosage: 900 MG, BID
     Route: 048
     Dates: start: 20201203, end: 20210131
  12. SABRIL [Suspect]
     Active Substance: VIGABATRIN
     Dosage: 1050 MG, BID
     Route: 048
     Dates: start: 20210201, end: 20210206
  13. RIVOTRIL [Concomitant]
     Active Substance: CLONAZEPAM
     Indication: Infantile spasms
     Dosage: 0.3 MG/DAY
     Route: 048
     Dates: start: 20170916
  14. RIVOTRIL [Concomitant]
     Active Substance: CLONAZEPAM
     Dosage: 0.9 MG/DAY
     Route: 048
  15. VALPROATE SODIUM [Concomitant]
     Active Substance: VALPROATE SODIUM
     Indication: Infantile spasms
     Dosage: 230 MG/DAY
     Route: 048
     Dates: start: 20170815
  16. VALPROATE SODIUM [Concomitant]
     Active Substance: VALPROATE SODIUM
     Dosage: 360 MG/DAY
     Route: 048
  17. SODIUM FERROUS CITRATE [Concomitant]
     Active Substance: SODIUM FERROUS CITRATE
     Indication: Infantile spasms
     Dosage: 20 MG/DAY
     Route: 048
     Dates: start: 20180124
  18. LEVOCARNITINE [Concomitant]
     Active Substance: LEVOCARNITINE
     Indication: Infantile spasms
     Dosage: 1 ML/DAY
     Route: 048
     Dates: start: 20170815
  19. LEVOCARNITINE [Concomitant]
     Active Substance: LEVOCARNITINE
     Dosage: 10 ML/DAY
     Route: 048
  20. TOPIRAMATE [Concomitant]
     Active Substance: TOPIRAMATE
     Indication: Infantile spasms
     Dosage: 65 MG/DAY
     Route: 048
     Dates: start: 20180228
  21. ROZEREM [Concomitant]
     Active Substance: RAMELTEON
     Indication: Product used for unknown indication
     Dosage: 2.4 MG/DAY
     Route: 065
  22. ZONISAMIDE [Concomitant]
     Active Substance: ZONISAMIDE
     Indication: Product used for unknown indication
     Dosage: 140 MG/DAY
     Route: 065
  23. PRANLUKAST [Concomitant]
     Active Substance: PRANLUKAST
     Indication: Product used for unknown indication
     Dosage: 90 MG/DAY
     Route: 065
  24. CARBOCYSTEINE [Concomitant]
     Active Substance: CARBOCYSTEINE
     Indication: Product used for unknown indication
     Dosage: 360 MG/DAY
     Route: 065
  25. AMBROXOL HYDROCHLORIDE [Concomitant]
     Active Substance: AMBROXOL HYDROCHLORIDE
     Indication: Product used for unknown indication
     Dosage: 12 MG/DAY
     Route: 065
  26. BUDESONIDE [Concomitant]
     Active Substance: BUDESONIDE
     Indication: Product used for unknown indication
     Dosage: 0.5 MG/DAY
     Route: 055
  27. LAMOTRIGINE [Concomitant]
     Active Substance: LAMOTRIGINE
     Indication: Product used for unknown indication
     Dosage: 14 MG/DAY
     Route: 065
  28. MAGNESIUM OXIDE [Concomitant]
     Active Substance: MAGNESIUM OXIDE
     Indication: Product used for unknown indication
     Dosage: 1 G/DAY
     Route: 065

REACTIONS (4)
  - Dyskinesia [Not Recovered/Not Resolved]
  - Magnetic resonance imaging head abnormal [Not Recovered/Not Resolved]
  - Influenza [Recovering/Resolving]
  - Drug ineffective [Unknown]

NARRATIVE: CASE EVENT DATE: 20180111
